FAERS Safety Report 5588316-7 (Version None)
Quarter: 2008Q1

REPORT INFORMATION
  Report Type: 
  Country: None (occurrence: None)
  Receive Date: 20080111
  Receipt Date: 20080102
  Transmission Date: 20080703
  Serious: Yes (Other)
  Sender: FDA-Public Use
  Company Number: US-JNJFOC-20080100707

PATIENT
  Age: 90 Year
  Sex: Male
  Weight: 72.58 kg

DRUGS (3)
  1. EXTRA STRENGTH TYLENOL [Suspect]
  2. EXTRA STRENGTH TYLENOL [Suspect]
     Indication: INSOMNIA
  3. TOPROL-XL [Concomitant]
     Indication: HYPERTENSION

REACTIONS (3)
  - DELUSION [None]
  - HALLUCINATION [None]
  - POOR QUALITY SLEEP [None]
